FAERS Safety Report 8559946-5 (Version None)
Quarter: 2012Q3

REPORT INFORMATION
  Report Type: 
  Country: None (occurrence: None)
  Receive Date: 20120802
  Receipt Date: 20120725
  Transmission Date: 20120928
  Serious: Yes (Hospitalization)
  Sender: FDA-Public Use
  Company Number: US-BAYER-2011-093369

PATIENT
  Age: 30 Year
  Sex: Female
  Weight: 125 kg

DRUGS (18)
  1. ALBUTEROL [Concomitant]
     Indication: DYSPNOEA
     Dosage: 2 PUFF(S), ONLY
     Route: 045
     Dates: start: 20091110
  2. AMITRIPTYLINE HCL [Concomitant]
     Dosage: 50MG DAILY
     Route: 048
     Dates: start: 20091110
  3. YAZ [Suspect]
     Indication: ENDOMETRIOSIS
     Dosage: UNK
     Dates: start: 20090914, end: 20091110
  4. VITAMIN D [Concomitant]
     Dosage: 2000 UNITS DAILY
     Route: 048
     Dates: start: 20091110
  5. YAZ [Suspect]
  6. IBUPROFEN [Concomitant]
     Indication: FIBROMYALGIA
  7. FLUOXETINE HCL [Concomitant]
     Indication: FIBROMYALGIA
     Dosage: 40 MG, DAILY
     Route: 048
     Dates: start: 20080101, end: 20090101
  8. LEVOTHYROXINE SODIUM [Concomitant]
     Indication: HYPOTHYROIDISM
     Dosage: 50MCG ONCE DAILY
     Route: 048
     Dates: start: 20070101
  9. ROBITUSSIN DM [Concomitant]
     Indication: BRONCHITIS
     Dosage: AS INSTRUCTED.
     Route: 048
     Dates: start: 20091008, end: 20091110
  10. IBUPROFEN [Concomitant]
     Indication: BRONCHITIS
     Dosage: AS INSTRUCTED
     Route: 048
     Dates: start: 20091008
  11. FLEXERIL [Concomitant]
     Indication: FIBROMYALGIA
     Dosage: UNK
     Route: 048
     Dates: start: 20010101
  12. FLEXERIL [Concomitant]
     Indication: BACK PAIN
  13. YAZ [Suspect]
  14. AMITRIPTLINE HYDROCHLORIDE TAB [Concomitant]
     Indication: FIBROMYALGIA
     Dosage: UNK
     Route: 048
     Dates: start: 20090801
  15. MUCINEX [Concomitant]
     Indication: BRONCHITIS
     Dosage: AS INSTRUCTED
     Route: 048
     Dates: start: 20091008, end: 20091110
  16. ASCORBIC ACID [Concomitant]
     Dosage: 1000MG DAILY
     Route: 048
     Dates: start: 20091110
  17. CLARITIN [Concomitant]
     Dosage: 10 MG, DAILY
     Route: 048
     Dates: start: 20091110
  18. LORTAB [Concomitant]
     Dosage: UNK
     Route: 048
     Dates: start: 20091110

REACTIONS (15)
  - INJURY [None]
  - PAIN [None]
  - FATIGUE [None]
  - BRONCHITIS [None]
  - ANXIETY [None]
  - EMOTIONAL DISTRESS [None]
  - DYSPNOEA [None]
  - DIZZINESS [None]
  - POST-TRAUMATIC STRESS DISORDER [None]
  - PULMONARY EMBOLISM [None]
  - FACIAL SPASM [None]
  - GENERAL PHYSICAL HEALTH DETERIORATION [None]
  - CHEST PAIN [None]
  - DEPRESSION [None]
  - LOSS OF CONSCIOUSNESS [None]
